FAERS Safety Report 8030860-7 (Version None)
Quarter: 2012Q1

REPORT INFORMATION
  Report Type: 
  Country: None (occurrence: None)
  Receive Date: 20120105
  Receipt Date: 20111222
  Transmission Date: 20120608
  Serious: Yes (Other)
  Sender: FDA-Public Use
  Company Number: DSJ-2011-27290

PATIENT
  Sex: Female

DRUGS (2)
  1. AMLODIPINE BESYLATE AND OLMESARTAN MEDOXOMIL [Suspect]
     Indication: HYPERTENSION
     Dosage: (1 IN 1 D),PER ORAL
     Route: 048
     Dates: start: 20110101
  2. PERINDOPRIL/INDAPAMIDE (INDAPAMIDE, PERINDOPRIL) (INDAPAMIDE, PERINDOP [Suspect]
     Indication: HYPERTENSION
     Dosage: 4 MG/1.25 MG,PER ORAL
     Route: 048
     Dates: start: 20110101

REACTIONS (6)
  - MEMORY IMPAIRMENT [None]
  - HYPOTHYROIDISM [None]
  - FATIGUE [None]
  - HYPERCHOLESTEROLAEMIA [None]
  - CARDIAC DISORDER [None]
  - DRUG ADMINISTRATION ERROR [None]
